FAERS Safety Report 24608229 (Version 1)
Quarter: 2024Q4

REPORT INFORMATION
  Report Type: Spontaneous
  Country: CA (occurrence: CA)
  Receive Date: 20241112
  Receipt Date: 20241112
  Transmission Date: 20250115
  Serious: Yes (Other)
  Sender: PFIZER
  Company Number: CA-PFIZER INC-202400296661

PATIENT
  Sex: Male

DRUGS (2)
  1. BEVACIZUMAB [Suspect]
     Active Substance: BEVACIZUMAB
     Indication: Neovascular age-related macular degeneration
     Dosage: UNK
     Route: 065
  2. BEVACIZUMAB [Suspect]
     Active Substance: BEVACIZUMAB
     Dosage: UNK
     Route: 065

REACTIONS (6)
  - Blindness [Recovering/Resolving]
  - Eye haemorrhage [Recovering/Resolving]
  - Heart rate irregular [Recovering/Resolving]
  - Retinal haemorrhage [Recovering/Resolving]
  - Retinal oedema [Recovering/Resolving]
  - Off label use [Recovering/Resolving]
